FAERS Safety Report 20429550 (Version 1)
Quarter: 2022Q1

REPORT INFORMATION
  Report Type: Report from Study
  Country: FR (occurrence: FR)
  Receive Date: 20220204
  Receipt Date: 20220204
  Transmission Date: 20220424
  Serious: Yes (Other)
  Sender: FDA-Public Use
  Company Number: FR-SERVIER-S19010767

PATIENT

DRUGS (7)
  1. ONCASPAR [Suspect]
     Active Substance: PEGASPARGASE
     Indication: Acute lymphocytic leukaemia
     Dosage: 2175 IU
     Route: 042
     Dates: start: 20190203, end: 20190203
  2. PREDNISOLONE [Suspect]
     Active Substance: PREDNISOLONE
     Indication: Acute lymphocytic leukaemia
     Dosage: 52 MG QD FROM D8 TO D28
     Route: 042
     Dates: start: 20190130
  3. VINCRISTINE [Suspect]
     Active Substance: VINCRISTINE
     Indication: Acute lymphocytic leukaemia
     Dosage: 1.3 MG ON D8, D15, D22, D29
     Route: 042
     Dates: start: 20190130, end: 20190220
  4. DAUNORUBICIN [Suspect]
     Active Substance: DAUNORUBICIN
     Indication: Acute lymphocytic leukaemia
     Dosage: 26 MG ON D8, D15, D22, D29
     Route: 042
     Dates: start: 20190130, end: 20190220
  5. METHOTREXATE [Suspect]
     Active Substance: METHOTREXATE
     Indication: Acute lymphocytic leukaemia
     Dosage: 12 MG ON D9, D13, D18, D24
     Route: 037
     Dates: start: 20190131, end: 20190215
  6. CYTARABINE [Suspect]
     Active Substance: CYTARABINE
     Indication: Acute lymphocytic leukaemia
     Dosage: 30 MG ON D9, D13, D18, D24
     Route: 037
     Dates: start: 20190131, end: 20190215
  7. HYDROCORTISONE [Suspect]
     Active Substance: HYDROCORTISONE
     Indication: Acute lymphocytic leukaemia
     Dosage: 15 MG ON D9, D13, D18, D24
     Route: 037
     Dates: start: 20190131, end: 20190215

REACTIONS (1)
  - Sepsis [Recovered/Resolved]

NARRATIVE: CASE EVENT DATE: 20190219
